FAERS Safety Report 18902203 (Version 4)
Quarter: 2023Q2

REPORT INFORMATION
  Report Type: Spontaneous
  Country: US (occurrence: US)
  Receive Date: 20210216
  Receipt Date: 20230406
  Transmission Date: 20230722
  Serious: Yes (Other)
  Sender: FDA-Public Use
  Company Number: US-GILEAD-2021-0515583

PATIENT
  Sex: Male
  Weight: 119.73 kg

DRUGS (88)
  1. ATRIPLA [Suspect]
     Active Substance: EFAVIRENZ\EMTRICITABINE\TENOFOVIR DISOPROXIL FUMARATE
     Indication: HIV infection
     Dosage: UNK
     Route: 048
     Dates: start: 2009
  2. ATRIPLA [Suspect]
     Active Substance: EFAVIRENZ\EMTRICITABINE\TENOFOVIR DISOPROXIL FUMARATE
     Dosage: UNK
     Route: 065
     Dates: start: 201002, end: 201311
  3. ATRIPLA [Suspect]
     Active Substance: EFAVIRENZ\EMTRICITABINE\TENOFOVIR DISOPROXIL FUMARATE
     Dosage: UNK
     Route: 065
     Dates: start: 201312, end: 201406
  4. ATRIPLA [Suspect]
     Active Substance: EFAVIRENZ\EMTRICITABINE\TENOFOVIR DISOPROXIL FUMARATE
     Dosage: UNK
     Route: 065
     Dates: start: 201407, end: 201410
  5. ATRIPLA [Suspect]
     Active Substance: EFAVIRENZ\EMTRICITABINE\TENOFOVIR DISOPROXIL FUMARATE
     Dosage: UNK
     Route: 065
     Dates: start: 201411, end: 201511
  6. ATRIPLA [Suspect]
     Active Substance: EFAVIRENZ\EMTRICITABINE\TENOFOVIR DISOPROXIL FUMARATE
     Dosage: UNK
     Route: 048
     Dates: start: 201002, end: 201511
  7. ACETAMINOPHEN [Concomitant]
     Active Substance: ACETAMINOPHEN
  8. AMANTADINE [Concomitant]
     Active Substance: AMANTADINE
  9. AMOXICILLIN [Concomitant]
     Active Substance: AMOXICILLIN
  10. ANDROGEL [Concomitant]
     Active Substance: TESTOSTERONE
  11. APAP/CODEINE [CODEINE PHOSPHATE;PARACETAMOL] [Concomitant]
  12. ARIPIPRAZOLE [Concomitant]
     Active Substance: ARIPIPRAZOLE
  13. ASPIRIN [Concomitant]
     Active Substance: ASPIRIN
  14. ATORVASTATIN [Concomitant]
     Active Substance: ATORVASTATIN
  15. AZITHROMYCIN [Concomitant]
     Active Substance: AZITHROMYCIN
  16. BENZTROPINE [Concomitant]
     Active Substance: BENZTROPINE
  17. BLINK TEARS [Concomitant]
     Active Substance: POLYETHYLENE GLYCOL 400
  18. CALCIUM CARBONATE [Concomitant]
     Active Substance: CALCIUM CARBONATE
  19. CARBIDOPA AND LEVODOPA [Concomitant]
     Active Substance: CARBIDOPA\LEVODOPA
  20. CEFUROXIME [Concomitant]
     Active Substance: CEFUROXIME
  21. CEPHALEXIN HYDROCHLORIDE [Concomitant]
     Active Substance: CEPHALEXIN HYDROCHLORIDE
  22. CETIRIZINE [Concomitant]
     Active Substance: CETIRIZINE HYDROCHLORIDE
  23. CHANTIX [Concomitant]
     Active Substance: VARENICLINE TARTRATE
  24. CIPROFLOXACIN [Concomitant]
     Active Substance: CIPROFLOXACIN
  25. CITALOPRAM [Concomitant]
     Active Substance: CITALOPRAM HYDROBROMIDE
  26. CLONAZEPAM [Concomitant]
     Active Substance: CLONAZEPAM
  27. CRESTOR [Concomitant]
     Active Substance: ROSUVASTATIN CALCIUM
  28. CYMBALTA [Concomitant]
     Active Substance: DULOXETINE HYDROCHLORIDE
  29. TESTOSTERONE [Concomitant]
     Active Substance: TESTOSTERONE
  30. DIVALPROEX SODIUM [Concomitant]
     Active Substance: DIVALPROEX SODIUM
  31. DOXYCYCLINE [Concomitant]
     Active Substance: DOXYCYCLINE
  32. DOXYCYCLINE HYCLATE [Concomitant]
     Active Substance: DOXYCYCLINE HYCLATE
  33. DULOXETINE [Concomitant]
     Active Substance: DULOXETINE
  34. FARXIGA [Concomitant]
     Active Substance: DAPAGLIFLOZIN PROPANEDIOL
  35. FENOBIBRATE [Concomitant]
     Active Substance: FENOFIBRATE
  36. FINASTERIDE [Concomitant]
     Active Substance: FINASTERIDE
  37. FLUTICASONE [Concomitant]
     Active Substance: FLUTICASONE
  38. GABAPENTIN [Concomitant]
     Active Substance: GABAPENTIN
  39. GLIPIZIDE [Concomitant]
     Active Substance: GLIPIZIDE
  40. HYDROCODONE [Concomitant]
     Active Substance: HYDROCODONE
  41. HYDROXYZINE [Concomitant]
     Active Substance: HYDROXYZINE HYDROCHLORIDE
  42. IBUPROFEN [Concomitant]
     Active Substance: IBUPROFEN
  43. IMODIUM [Concomitant]
     Active Substance: LOPERAMIDE HYDROCHLORIDE
  44. KETOCONAZOLE [Concomitant]
     Active Substance: KETOCONAZOLE
  45. LAMOTRIGINE [Concomitant]
     Active Substance: LAMOTRIGINE
  46. LEVOFLOXACIN [Concomitant]
     Active Substance: LEVOFLOXACIN
  47. LISINOPRIL [Concomitant]
     Active Substance: LISINOPRIL
  48. LORAZEPAM [Concomitant]
     Active Substance: LORAZEPAM
  49. LOVAZA [Concomitant]
     Active Substance: OMEGA-3-ACID ETHYL ESTERS
  50. LYRICA [Concomitant]
     Active Substance: PREGABALIN
  51. MECLIZINE HYDROCHLORIDE [Concomitant]
     Active Substance: MECLIZINE HYDROCHLORIDE
  52. MELOXICAM [Concomitant]
     Active Substance: MELOXICAM
  53. METFORMIN [Concomitant]
     Active Substance: METFORMIN HYDROCHLORIDE
  54. METHYLPREDNISOLONE [Concomitant]
     Active Substance: METHYLPREDNISOLONE
  55. METRONIDAZOLE [Concomitant]
     Active Substance: METRONIDAZOLE
  56. MUPIROCIN [Concomitant]
     Active Substance: MUPIROCIN
  57. NAPROXEN [Concomitant]
     Active Substance: NAPROXEN
  58. OFLOXACIN [Concomitant]
     Active Substance: OFLOXACIN
  59. OMEPRAZOLE [Concomitant]
     Active Substance: OMEPRAZOLE
  60. OXCARBAZEPINE [Concomitant]
     Active Substance: OXCARBAZEPINE
  61. OXYCODONE [Concomitant]
     Active Substance: OXYCODONE
  62. PHENETICILLIN [Concomitant]
     Active Substance: PHENETICILLIN
  63. PENTOXIFYLLINE [Concomitant]
     Active Substance: PENTOXIFYLLINE
  64. PREGABALIN [Concomitant]
     Active Substance: PREGABALIN
  65. MINERALS\VITAMINS [Concomitant]
     Active Substance: MINERALS\VITAMINS
  66. PROPOXYPHENE [Concomitant]
     Active Substance: PROPOXYPHENE
  67. PROPRANOLOL HYDROCHLORIDE [Concomitant]
     Active Substance: PROPRANOLOL HYDROCHLORIDE
  68. RANITIDINE [Concomitant]
     Active Substance: RANITIDINE
  69. RISPERIDONE [Concomitant]
     Active Substance: RISPERIDONE
  70. ROSUVASTATIN [Concomitant]
     Active Substance: ROSUVASTATIN
  71. SAPHRIS [Concomitant]
     Active Substance: ASENAPINE MALEATE
  72. SIMVASTATIN [Concomitant]
     Active Substance: SIMVASTATIN
  73. SULFAMETHOXAZOLE\TRIMETHOPRIM [Concomitant]
     Active Substance: SULFAMETHOXAZOLE\TRIMETHOPRIM
  74. TAMSULOSIN [Concomitant]
     Active Substance: TAMSULOSIN
  75. TERBINAFINE [Concomitant]
     Active Substance: TERBINAFINE
  76. TESTOSTERONE CYPIONATE [Concomitant]
     Active Substance: TESTOSTERONE CYPIONATE
  77. TRADJENTA [Concomitant]
     Active Substance: LINAGLIPTIN
  78. TRAMADOL [Concomitant]
     Active Substance: TRAMADOL
  79. TRAZODONE [Concomitant]
     Active Substance: TRAZODONE HYDROCHLORIDE
  80. TRILIPIX [Concomitant]
     Active Substance: FENOFIBRIC ACID
  81. TRIUMEQ [Concomitant]
     Active Substance: ABACAVIR SULFATE\DOLUTEGRAVIR SODIUM\LAMIVUDINE
  82. TRUEPLUS GLUCOSE [Concomitant]
  83. VASCEPA [Concomitant]
     Active Substance: ICOSAPENT ETHYL
  84. VITAMIN C [Concomitant]
     Active Substance: ASCORBIC ACID
  85. VITAMIN D3 [Concomitant]
     Active Substance: CHOLECALCIFEROL
  86. ZIPRASIDONE [Concomitant]
     Active Substance: ZIPRASIDONE
  87. ZOLPIDEM [Concomitant]
     Active Substance: ZOLPIDEM TARTRATE
  88. BIKTARVY [Concomitant]
     Active Substance: BICTEGRAVIR SODIUM\EMTRICITABINE\TENOFOVIR ALAFENAMIDE FUMARATE

REACTIONS (7)
  - Osteoporosis [Not Recovered/Not Resolved]
  - Bone density decreased [Unknown]
  - Emotional distress [Not Recovered/Not Resolved]
  - Anhedonia [Not Recovered/Not Resolved]
  - Anxiety [Not Recovered/Not Resolved]
  - Pain [Not Recovered/Not Resolved]
  - Osteopenia [Not Recovered/Not Resolved]

NARRATIVE: CASE EVENT DATE: 20160101
